FAERS Safety Report 15919335 (Version 2)
Quarter: 2019Q2

REPORT INFORMATION
  Report Type: Spontaneous
  Country: US (occurrence: US)
  Receive Date: 20190205
  Receipt Date: 20190411
  Transmission Date: 20190711
  Serious: Yes (Hospitalization, Other)
  Sender: FDA-Public Use
  Company Number: US-GLAXOSMITHKLINE-US2019GSK017915

PATIENT
  Sex: Male
  Weight: 147 kg

DRUGS (2)
  1. LYRICA [Suspect]
     Active Substance: PREGABALIN
     Indication: NEUROPATHY PERIPHERAL
     Dosage: UNK
     Dates: start: 2018
  2. ROPINIROLE. [Suspect]
     Active Substance: ROPINIROLE
     Indication: NEUROPATHY PERIPHERAL
     Dosage: UNK
     Route: 048
     Dates: start: 2006, end: 2007

REACTIONS (8)
  - Neuropathy peripheral [Recovering/Resolving]
  - Tremor [Recovering/Resolving]
  - Product dose omission [Unknown]
  - Ill-defined disorder [Unknown]
  - Asthenia [Recovering/Resolving]
  - Discomfort [Recovering/Resolving]
  - Restless legs syndrome [Recovering/Resolving]
  - Drug ineffective [Unknown]
